FAERS Safety Report 6326782-X (Version None)
Quarter: 2009Q3

REPORT INFORMATION
  Report Type: 
  Country: None (occurrence: None)
  Receive Date: 20090825
  Receipt Date: 20090818
  Transmission Date: 20100115
  Serious: Yes (Disabling)
  Sender: FDA-Public Use
  Company Number: CA-AVENTIS-200919123GDDC

PATIENT
  Age: 65 Year
  Sex: Female

DRUGS (2)
  1. TAXOTERE [Suspect]
     Indication: DRUG USE FOR UNKNOWN INDICATION
     Dosage: DOSE: UNK
     Route: 041
     Dates: start: 20090714, end: 20090714
  2. UNKNOWN DRUG [Concomitant]

REACTIONS (2)
  - PARAPLEGIA [None]
  - THROMBOSIS [None]
